FAERS Safety Report 23836037 (Version 1)
Quarter: 2024Q2

REPORT INFORMATION
  Report Type: Spontaneous
  Country: US (occurrence: US)
  Receive Date: 20240509
  Receipt Date: 20240509
  Transmission Date: 20240716
  Serious: Yes (Hospitalization)
  Sender: FDA-Public Use
  Company Number: US-SANOFI-02030559

PATIENT
  Age: 77 Year
  Sex: Female

DRUGS (1)
  1. TOUJEO [Suspect]
     Active Substance: INSULIN GLARGINE
     Indication: Type 2 diabetes mellitus
     Dosage: 18 UNITS HS AND DRUG TREATMENT DURATION:USED ONCE
     Route: 065

REACTIONS (4)
  - Fall [Unknown]
  - Patella fracture [Unknown]
  - Dehydration [Unknown]
  - Expired product administered [Unknown]
